FAERS Safety Report 6370538-9 (Version None)
Quarter: 2009Q3

REPORT INFORMATION
  Report Type: 
  Country: None (occurrence: None)
  Receive Date: 20090923
  Receipt Date: 20090917
  Transmission Date: 20100115
  Serious: Yes (Other)
  Sender: FDA-Public Use
  Company Number: A0807874A

PATIENT
  Age: 46 Year
  Sex: Female

DRUGS (4)
  1. ADVAIR HFA [Suspect]
     Indication: ASTHMA
     Dosage: 1PUFF TWICE PER DAY
     Route: 055
     Dates: start: 20090910, end: 20090911
  2. ALBUTEROL [Concomitant]
  3. UNKNOWN [Concomitant]
  4. EBASTINE [Concomitant]

REACTIONS (2)
  - APHASIA [None]
  - PHARYNGEAL OEDEMA [None]
